FAERS Safety Report 18098382 (Version 1)
Quarter: 2020Q3

REPORT INFORMATION
  Report Type: Spontaneous
  Country: US (occurrence: US)
  Receive Date: 20200730
  Receipt Date: 20200730
  Transmission Date: 20201103
  Serious: Yes (Hospitalization)
  Sender: FDA-Public Use
  Company Number: None

PATIENT
  Sex: Female

DRUGS (19)
  1. FUROSEMIDE. [Concomitant]
     Active Substance: FUROSEMIDE
  2. POT CHLORIDE ER [Concomitant]
  3. AMLODIPINE [Concomitant]
     Active Substance: AMLODIPINE BESYLATE
  4. GLUCOS/CHOND [Concomitant]
  5. LEVOFLOXACIN. [Concomitant]
     Active Substance: LEVOFLOXACIN
  6. DICLOFENAC [Concomitant]
     Active Substance: DICLOFENAC
  7. DEXAMETHASON [Concomitant]
     Active Substance: DEXAMETHASONE
  8. FOLIC ACID. [Concomitant]
     Active Substance: FOLIC ACID
  9. ONDANSETRON [Concomitant]
     Active Substance: ONDANSETRON
  10. FLUCONAZOLE. [Concomitant]
     Active Substance: FLUCONAZOLE
  11. LORAZEPAM. [Concomitant]
     Active Substance: LORAZEPAM
  12. NARCAN [Concomitant]
     Active Substance: NALOXONE HYDROCHLORIDE
  13. ALLOPURINOL. [Concomitant]
     Active Substance: ALLOPURINOL
  14. HYDROMORPHON [Concomitant]
     Active Substance: HYDROMORPHONE
  15. LIDO/PRILOCN CRE [Concomitant]
  16. GRANIX [Suspect]
     Active Substance: TBO-FILGRASTIM
     Indication: PLASMA CELL MYELOMA
     Dosage: OTHER DOSE:PFS ; SQ ? D 8?21 OF 21 D CYCLE
     Route: 058
  17. METOPROL TAR [Concomitant]
  18. PROCHLORPER [Concomitant]
  19. VALACYCLOVIR [Concomitant]
     Active Substance: VALACYCLOVIR HYDROCHLORIDE

REACTIONS (1)
  - Chemotherapy [None]
